FAERS Safety Report 23305860 (Version 1)
Quarter: 2023Q4

REPORT INFORMATION
  Report Type: Spontaneous
  Country: IN (occurrence: IN)
  Receive Date: 20231218
  Receipt Date: 20231218
  Transmission Date: 20240110
  Serious: Yes (Hospitalization)
  Sender: FDA-Public Use
  Company Number: IN-STRIDES ARCOLAB LIMITED-2023SP018658

PATIENT
  Age: 52 Year
  Sex: Male

DRUGS (2)
  1. METHOTREXATE [Suspect]
     Active Substance: METHOTREXATE
     Indication: Pruritus
     Dosage: 15 MILLIGRAM/DAY, ACCIDENTALLY TOOK 5 TABLETS OF METHOTREXATE (EACH 15MG) ON 5 CONSECUTIVE DAYS
     Route: 065
  2. METHOTREXATE [Suspect]
     Active Substance: METHOTREXATE
     Indication: Skin exfoliation

REACTIONS (4)
  - Leukoerythroblastosis [Recovered/Resolved]
  - Accidental overdose [Unknown]
  - Medication error [Unknown]
  - Off label use [Unknown]
